FAERS Safety Report 23952222 (Version 1)
Quarter: 2024Q2

REPORT INFORMATION
  Report Type: Spontaneous
  Country: DE (occurrence: None)
  Receive Date: 20240607
  Receipt Date: 20240607
  Transmission Date: 20240715
  Serious: Yes (Death)
  Sender: FDA-Public Use
  Company Number: 2024A133349

PATIENT
  Age: 82 Year
  Sex: Male

DRUGS (1)
  1. ONDEXXYA [Suspect]
     Active Substance: ANDEXANET ALFA
     Indication: Emergency care
     Dosage: 5.0GR ONCE/SINGLE ADMINISTRATION
     Route: 040

REACTIONS (1)
  - Cardiac arrest [Fatal]
